FAERS Safety Report 12636075 (Version 1)
Quarter: 2016Q3

REPORT INFORMATION
  Report Type: Spontaneous
  Country: IT (occurrence: IT)
  Receive Date: 20160809
  Receipt Date: 20160809
  Transmission Date: 20161109
  Serious: Yes (Death, Hospitalization, Other)
  Sender: FDA-Public Use
  Company Number: IT-GILEAD-2016-0226999

PATIENT
  Age: 39 Year
  Sex: Male

DRUGS (3)
  1. MODURETIC 5-50 [Concomitant]
     Active Substance: AMILORIDE HYDROCHLORIDE\HYDROCHLOROTHIAZIDE
     Dosage: UNK
  2. DEFERASIROX [Concomitant]
     Active Substance: DEFERASIROX
     Indication: THALASSAEMIA BETA
     Dosage: UNK
  3. HARVONI [Suspect]
     Active Substance: LEDIPASVIR\SOFOSBUVIR
     Indication: HEPATITIS C
     Dosage: 1 DF, QD
     Route: 048
     Dates: start: 20160322, end: 20160803

REACTIONS (4)
  - Dehydration [Fatal]
  - Cardiac failure [Fatal]
  - Gastroenteritis [Fatal]
  - Thalassaemia beta [Fatal]

NARRATIVE: CASE EVENT DATE: 20160803
